FAERS Safety Report 10077560 (Version 1)
Quarter: 2014Q2

REPORT INFORMATION
  Report Type: Spontaneous
  Country: US (occurrence: US)
  Receive Date: 20140414
  Receipt Date: 20140414
  Transmission Date: 20141212
  Serious: No
  Sender: FDA-Public Use
  Company Number: US-BANPHARM-20131812

PATIENT
  Age: 86 Year
  Sex: Male
  Weight: 93.44 kg

DRUGS (4)
  1. ALEVE LIQUID GELS 220 MG [Suspect]
     Indication: PAIN
     Dosage: 1 DF, PRN,
     Route: 048
     Dates: start: 2009, end: 201308
  2. LOW DOSE BAYER ASPIRIN [Concomitant]
  3. VITAMINS [Concomitant]
  4. MAGNESIUM 250 MG [Concomitant]

REACTIONS (1)
  - Drug ineffective [Unknown]
